FAERS Safety Report 21666381 (Version 1)
Quarter: 2022Q4

REPORT INFORMATION
  Report Type: Spontaneous
  Country: FR (occurrence: FR)
  Receive Date: 20221201
  Receipt Date: 20221201
  Transmission Date: 20230112
  Serious: Yes (Other)
  Sender: FDA-Public Use
  Company Number: None

PATIENT
  Age: 18 Year
  Sex: Male

DRUGS (8)
  1. ACETAMINOPHEN [Suspect]
     Active Substance: ACETAMINOPHEN
     Indication: Perioperative analgesia
     Dosage: UNIT DOSE : 1 DOSAGE FORMS, FREQUENCY TIME : 1 TOTAL, DURATION : 1 DAYS
     Route: 065
     Dates: start: 20180110, end: 20180110
  2. TRAMADOL HYDROCHLORIDE [Suspect]
     Active Substance: TRAMADOL HYDROCHLORIDE
     Indication: Perioperative analgesia
     Dosage: UNIT DOSE : 1 DOSAGE FORMS, FREQUENCY TIME : 1 TOTAL, DURATION : 1 DAYS
     Route: 065
     Dates: start: 20180110, end: 20180110
  3. SUFENTA [Suspect]
     Active Substance: SUFENTANIL CITRATE
     Indication: General anaesthesia
     Dosage: UNIT DOSE : 1 DOSAGE FORMS, FREQUENCY TIME : 1 TOTAL, DURATION : 1 DAYS
     Route: 065
     Dates: start: 20180110, end: 20180110
  4. KETOPROFEN [Suspect]
     Active Substance: KETOPROFEN
     Indication: Perioperative analgesia
     Dosage: UNIT DOSE : 100 MG, FREQUENCY TIME : 1 TOTAL, DURATION : 1 DAYS
     Route: 065
     Dates: start: 20180110, end: 20180110
  5. KETAMINE [Suspect]
     Active Substance: KETAMINE
     Indication: General anaesthesia
     Dosage: UNIT DOSE : 1 DOSAGE FORMS, FREQUENCY TIME : 1 TOTAL, DURATION : 1 DAYS
     Route: 065
     Dates: start: 20180110, end: 20180110
  6. SEVOFLURANE [Suspect]
     Active Substance: SEVOFLURANE
     Indication: General anaesthesia
     Dosage: UNIT DOSE : 1 DOSAGE FORMS, FREQUENCY TIME : 1 TOTAL, DURATION : 1 DAYS
     Route: 065
     Dates: start: 20180110, end: 20180110
  7. PROPOFOL [Suspect]
     Active Substance: PROPOFOL
     Indication: General anaesthesia
     Dosage: UNIT DOSE : 1 DOSAGE FORMS, FREQUENCY TIME : 1 TOTAL, DURATION : 1 DAYS
     Route: 065
     Dates: start: 20180110, end: 20180110
  8. DEXAMETHASONE [Suspect]
     Active Substance: DEXAMETHASONE
     Indication: Prophylaxis of nausea and vomiting
     Dosage: UNIT DOSE : 1 DOSAGE FORMS, FREQUENCY TIME : 1 TOTAL, DURATION : 1 DAYS
     Route: 065
     Dates: start: 20180110, end: 20180110

REACTIONS (2)
  - Type I hypersensitivity [Recovered/Resolved]
  - Allergy test negative [Recovered/Resolved]

NARRATIVE: CASE EVENT DATE: 20180110
